FAERS Safety Report 23158861 (Version 1)
Quarter: 2023Q4

REPORT INFORMATION
  Report Type: Spontaneous
  Country: US (occurrence: None)
  Receive Date: 20231107
  Receipt Date: 20231107
  Transmission Date: 20240110
  Serious: Yes (Other)
  Sender: FDA-Public Use
  Company Number: None

PATIENT
  Age: 11 Week
  Sex: Female
  Weight: 5.96 kg

DRUGS (1)
  1. BEYFORTUS [Suspect]
     Active Substance: NIRSEVIMAB-ALIP
     Indication: Product used for unknown indication
     Dosage: FREQUENCY : ONCE;?
     Route: 030
     Dates: start: 20231102, end: 20231102

REACTIONS (3)
  - Screaming [None]
  - Behaviour disorder [None]
  - Eating disorder [None]

NARRATIVE: CASE EVENT DATE: 20231103
